FAERS Safety Report 5067994-5 (Version None)
Quarter: 2006Q3

REPORT INFORMATION
  Report Type: 
  Country: None (occurrence: None)
  Receive Date: 20060717
  Receipt Date: 20060131
  Transmission Date: 20061208
  Serious: Yes (Death, Hospitalization, Other)
  Sender: FDA-Public Use
  Company Number: 2006-01-2129

PATIENT
  Age: 79 Year
  Sex: Male
  Weight: 65.7716 kg

DRUGS (7)
  1. INTEGRILIN [Suspect]
     Indication: DRUG USE FOR UNKNOWN INDICATION
     Dosage: 180-2 MCG/KG INTRAVENOUS; SEE IMAGE
     Route: 042
     Dates: start: 20051104, end: 20051104
  2. BIVALIRUDIN INJECTABLE SOLUTION [Suspect]
     Indication: DRUG USE FOR UNKNOWN INDICATION
     Dosage: SEE IMAGE
     Route: 042
     Dates: start: 20051104, end: 20051104
  3. NITROGLYCERIN [Concomitant]
  4. CLOPIDOGREL [Concomitant]
  5. METOPROLOL TARTRATE [Concomitant]
  6. ASPIRIN [Concomitant]
  7. PRINIVIL [Concomitant]

REACTIONS (3)
  - ABDOMINAL PAIN [None]
  - HYPOTENSION [None]
  - RETROPERITONEAL HAEMORRHAGE [None]
